FAERS Safety Report 8233218-0 (Version None)
Quarter: 2012Q1

REPORT INFORMATION
  Report Type: 
  Country: None (occurrence: None)
  Receive Date: 20120326
  Receipt Date: 20120321
  Transmission Date: 20120608
  Serious: No
  Sender: FDA-Public Use
  Company Number: US-PFIZER INC-2012074051

PATIENT
  Sex: Female
  Weight: 86.168 kg

DRUGS (5)
  1. FLECTOR [Suspect]
     Indication: POOR PERIPHERAL CIRCULATION
  2. FLECTOR [Suspect]
     Indication: ARTHROPATHY
  3. FLECTOR [Suspect]
     Indication: ARTHRALGIA
     Dosage: UNK, 1X/DAY
     Route: 061
  4. COREG [Concomitant]
     Indication: CARDIAC DISORDER
     Dosage: UNK
  5. VITAMIN D [Concomitant]
     Indication: RENAL FAILURE
     Dosage: UNK

REACTIONS (1)
  - APPLICATION SITE HAEMATOMA [None]
